FAERS Safety Report 14037958 (Version 1)
Quarter: 2017Q4

REPORT INFORMATION
  Report Type: Other
  Country: CA (occurrence: CA)
  Receive Date: 20171004
  Receipt Date: 20171004
  Transmission Date: 20180321
  Serious: Yes (Other)
  Sender: FDA-Public Use
  Company Number: CA-APOTEX-2017AP019037

PATIENT
  Age: 31 Year
  Sex: Female

DRUGS (18)
  1. THIOPENTAL [Suspect]
     Active Substance: THIOPENTAL
     Indication: STATUS EPILEPTICUS
     Dosage: 300 MG, Q.H.
     Route: 042
  2. SODIUM CITRATE. [Suspect]
     Active Substance: SODIUM CITRATE
     Indication: PROPHYLAXIS
     Dosage: 30 ML, UNK
     Route: 048
  3. THIOPENTAL [Suspect]
     Active Substance: THIOPENTAL
     Dosage: 100 MG, UNK
     Route: 042
  4. APO-LORAZEPAM [Suspect]
     Active Substance: LORAZEPAM
     Indication: STATUS EPILEPTICUS
     Dosage: 2 MG, UNK
     Route: 065
  5. APO-PHENYTOIN SODIUM [Suspect]
     Active Substance: PHENYTOIN SODIUM
     Indication: STATUS EPILEPTICUS
     Dosage: 1 G, UNK
     Route: 065
  6. SUCCINYLCHOLINE CHLORIDE. [Suspect]
     Active Substance: SUCCINYLCHOLINE CHLORIDE
     Indication: ENDOTRACHEAL INTUBATION
     Dosage: 100 MG, UNK
     Route: 065
  7. APO-METOCLOP [Suspect]
     Active Substance: METOCLOPRAMIDE HYDROCHLORIDE
     Indication: PROPHYLAXIS
     Dosage: 10 MG, UNK
     Route: 042
  8. ATIVAN [Suspect]
     Active Substance: LORAZEPAM
     Indication: BIPOLAR DISORDER
     Dosage: UNK
     Route: 065
  9. THIOPENTAL [Suspect]
     Active Substance: THIOPENTAL
     Indication: ENDOTRACHEAL INTUBATION
     Dosage: 100 MG, UNK
     Route: 042
  10. THIOPENTAL [Suspect]
     Active Substance: THIOPENTAL
     Dosage: 250 MG, UNK
     Route: 042
  11. APO-MIDAZOLAM INJECTABLE (APOTEX STD) [Suspect]
     Active Substance: MIDAZOLAM HYDROCHLORIDE
     Indication: STATUS EPILEPTICUS
     Dosage: 3 MG, UNK
     Route: 065
  12. APO-DIAZEPAM [Suspect]
     Active Substance: DIAZEPAM
     Indication: STATUS EPILEPTICUS
     Dosage: 10 MG, UNK
     Route: 065
  13. DEXTROSE. [Suspect]
     Active Substance: DEXTROSE
     Indication: PRODUCT USED FOR UNKNOWN INDICATION
     Dosage: 50 ML, UNK
     Route: 042
  14. PROPOFOL. [Suspect]
     Active Substance: PROPOFOL
     Indication: STATUS EPILEPTICUS
     Dosage: 200 MG, Q.H.
     Route: 042
  15. THIOPENTAL [Suspect]
     Active Substance: THIOPENTAL
     Dosage: 250 MG, UNK
     Route: 042
  16. APO-PAROXETINE [Suspect]
     Active Substance: PAROXETINE
     Indication: BIPOLAR DISORDER
     Route: 065
  17. MAGNESIUM SULFATE. [Suspect]
     Active Substance: MAGNESIUM SULFATE
     Indication: STATUS EPILEPTICUS
     Dosage: UNK
     Route: 065
  18. THIOPENTAL [Suspect]
     Active Substance: THIOPENTAL
     Dosage: 300 MG, Q.H.
     Route: 042

REACTIONS (7)
  - Left ventricular dysfunction [Not Recovered/Not Resolved]
  - Hypotension [Not Recovered/Not Resolved]
  - Maternal exposure during pregnancy [None]
  - Diabetes insipidus [Not Recovered/Not Resolved]
  - Exposure during pregnancy [Not Recovered/Not Resolved]
  - Renal impairment [Not Recovered/Not Resolved]
  - Foetal death [Not Recovered/Not Resolved]
